FAERS Safety Report 25740579 (Version 1)
Quarter: 2025Q3

REPORT INFORMATION
  Report Type: Spontaneous
  Country: US (occurrence: US)
  Receive Date: 20250829
  Receipt Date: 20250829
  Transmission Date: 20251020
  Serious: Yes (Hospitalization)
  Sender: SANOFI AVENTIS
  Company Number: US-SA-2025SA256209

PATIENT
  Age: 74 Year
  Sex: Male
  Weight: 73.48 kg

DRUGS (3)
  1. DUPIXENT [Suspect]
     Active Substance: DUPILUMAB
     Indication: Dermatitis atopic
     Dosage: 300 MG, QOW
     Route: 058
     Dates: start: 202506
  2. LISINOPRIL [Suspect]
     Active Substance: LISINOPRIL
     Dates: end: 2025
  3. NIFEDIPINE [Suspect]
     Active Substance: NIFEDIPINE
     Dates: end: 2025

REACTIONS (4)
  - Swelling face [Unknown]
  - Skin mass [Unknown]
  - Dry skin [Unknown]
  - Pruritus [Unknown]

NARRATIVE: CASE EVENT DATE: 20250101
